FAERS Safety Report 8667674 (Version 4)
Quarter: 2014Q2

REPORT INFORMATION
  Report Type: Spontaneous
  Country: US (occurrence: US)
  Receive Date: 20120717
  Receipt Date: 20140618
  Transmission Date: 20141212
  Serious: Yes (Hospitalization)
  Sender: FDA-Public Use
  Company Number: US-009507513-1207USA004138

PATIENT
  Sex: Female
  Weight: 101.13 kg

DRUGS (1)
  1. NUVARING [Suspect]
     Indication: CONTRACEPTION
     Dosage: UNK
     Route: 067
     Dates: start: 20100322, end: 20100920

REACTIONS (2)
  - Embolism venous [Unknown]
  - Headache [Not Recovered/Not Resolved]
